FAERS Safety Report 9166835 (Version 1)
Quarter: 2012Q4

REPORT INFORMATION
  Report Type: 
  Country: DE (occurrence: DE)
  Receive Date: 20121029
  Receipt Date: 20121029
  Transmission Date: 20130627
  Serious: Yes (Other)
  Sender: FDA-Public Use
  Company Number: DE-BIOMARINP-003155

PATIENT
  Age: 5 None
  Sex: Male
  Weight: 18.6 kg

DRUGS (2)
  1. NAGLAZYME [Suspect]
     Indication: MUCOPOLYSACCHARIDOSIS VI
     Route: 041
     Dates: start: 20080912, end: 20121019
  2. PREDNISONE [Concomitant]
     Indication: PREMEDICATION
     Route: 041

REACTIONS (4)
  - Swelling face [Recovered/Resolved]
  - Pyrexia [Recovered/Resolved]
  - Lip swelling [None]
  - Viral infection [None]
